FAERS Safety Report 17693948 (Version 1)
Quarter: 2020Q2

REPORT INFORMATION
  Report Type: Spontaneous
  Country: US (occurrence: US)
  Receive Date: 20200422
  Receipt Date: 20200422
  Transmission Date: 20200714
  Serious: Yes (Other)
  Sender: FDA-Public Use
  Company Number: US-PFIZER INC-2020155230

PATIENT
  Age: 73 Year
  Sex: Female
  Weight: 58.97 kg

DRUGS (1)
  1. XELJANZ [Suspect]
     Active Substance: TOFACITINIB CITRATE
     Indication: RHEUMATOID ARTHRITIS
     Dosage: 200 MG, 1X/DAY (TAKES IT AT NIGHT)
     Route: 048

REACTIONS (6)
  - Arthralgia [Unknown]
  - Off label use [Unknown]
  - Sjogren^s syndrome [Unknown]
  - Pain in extremity [Unknown]
  - Rheumatoid arthritis [Unknown]
  - Pain [Unknown]
